FAERS Safety Report 5370448-X (Version None)
Quarter: 2007Q2

REPORT INFORMATION
  Report Type: 
  Country: None (occurrence: None)
  Receive Date: 20070625
  Receipt Date: 20070625
  Transmission Date: 20071010
  Serious: Yes (Life-Threatening)
  Sender: FDA-Public Use
  Company Number: None

PATIENT
  Age: 61 Year
  Sex: Female
  Weight: 74.8435 kg

DRUGS (3)
  1. ZYPREXA [Suspect]
     Indication: HOMELESS
     Dosage: TWICE DAILY
     Dates: start: 20020618, end: 20020625
  2. ZYPREXA [Suspect]
     Indication: SLEEP DISORDER
     Dosage: TWICE DAILY
     Dates: start: 20020618, end: 20020625
  3. HALDOL [Suspect]

REACTIONS (8)
  - CARDIAC FAILURE CONGESTIVE [None]
  - CEREBROVASCULAR ACCIDENT [None]
  - JOINT DISLOCATION [None]
  - JOINT SPRAIN [None]
  - NEUROLEPTIC MALIGNANT SYNDROME [None]
  - ORAL INTAKE REDUCED [None]
  - PNEUMONIA [None]
  - TARDIVE DYSKINESIA [None]
